FAERS Safety Report 19879577 (Version 1)
Quarter: 2021Q3

REPORT INFORMATION
  Report Type: Spontaneous
  Country: PL (occurrence: PL)
  Receive Date: 20210924
  Receipt Date: 20210924
  Transmission Date: 20211014
  Serious: Yes (Hospitalization)
  Sender: FDA-Public Use
  Company Number: PL-TEVA-2021-PL-1956903

PATIENT
  Age: 29 Year
  Sex: Female
  Weight: 69 kg

DRUGS (3)
  1. MIDAZOLAM. [Suspect]
     Active Substance: MIDAZOLAM
     Dates: start: 20210105, end: 20210105
  2. PREGABALIN. [Suspect]
     Active Substance: PREGABALIN
     Dates: start: 20210105, end: 20210105
  3. QUETIAPINE. [Suspect]
     Active Substance: QUETIAPINE
     Dates: start: 20210105, end: 20210105

REACTIONS (3)
  - Suicide attempt [Unknown]
  - Aggression [Unknown]
  - Agitation [Unknown]

NARRATIVE: CASE EVENT DATE: 20210105
